FAERS Safety Report 4853604-6 (Version None)
Quarter: 2005Q4

REPORT INFORMATION
  Report Type: 
  Country: None (occurrence: None)
  Receive Date: 20051212
  Receipt Date: 20051121
  Transmission Date: 20060501
  Serious: Yes (Other)
  Sender: FDA-Public Use
  Company Number: 2005145751

PATIENT
  Age: 73 Year
  Sex: Male

DRUGS (15)
  1. AMLODIPINE [Suspect]
     Indication: ANXIETY
     Dosage: 5 MG (5 MG, 1 IN 1 D); ORAL
     Route: 048
     Dates: start: 19960101
  2. AMLODIPINE [Suspect]
     Indication: HYPERTENSION
     Dosage: 5 MG (5 MG, 1 IN 1 D); ORAL
     Route: 048
     Dates: start: 19960101
  3. AMLODIPINE [Suspect]
     Indication: ISCHAEMIC CARDIOMYOPATHY
     Dosage: 5 MG (5 MG, 1 IN 1 D); ORAL
     Route: 048
     Dates: start: 19960101
  4. LIPITOR [Concomitant]
  5. XANAX [Concomitant]
  6. OMEPRAZOLE [Concomitant]
  7. RESERPINE [Concomitant]
  8. ASPIRIN [Concomitant]
  9. EFFEXOR EXEL (VENLAFAXINE HYDROCHLORIDE) [Concomitant]
  10. NASONEX PUFF (MOMETASONE FUROATE) [Concomitant]
  11. CAPTOPRIL [Concomitant]
  12. PLAVIX [Concomitant]
  13. RISPERDAL [Concomitant]
  14. SERETIDE DISCUS (FLUTICASONE PROPIONATE, SALMETEROL XINAFOATE) [Concomitant]
  15. VENTOLIN PUFF (SALBUTAMOL) [Concomitant]

REACTIONS (5)
  - DILATATION VENTRICULAR [None]
  - DISEASE PROGRESSION [None]
  - EJECTION FRACTION DECREASED [None]
  - MYOCARDIAL ISCHAEMIA [None]
  - NEGATIVE CARDIAC INOTROPIC EFFECT [None]
